FAERS Safety Report 17054903 (Version 2)
Quarter: 2019Q4

REPORT INFORMATION
  Report Type: Other
  Country: FR (occurrence: FR)
  Receive Date: 20191115
  Receipt Date: 20191127
  Transmission Date: 20200122
  Serious: Yes (Hospitalization)
  Sender: FDA-Public Use
  Company Number: FR-CELLTRION INC.-2019FR026436

PATIENT

DRUGS (1)
  1. TRUXIMA [Suspect]
     Active Substance: RITUXIMAB-ABBS
     Indication: CRYOGLOBULINAEMIA
     Dosage: 750 MG, CYCLIC
     Route: 042
     Dates: start: 20190524, end: 20190524

REACTIONS (3)
  - Condition aggravated [Not Recovered/Not Resolved]
  - Product use in unapproved indication [Unknown]
  - Cryoglobulinaemia [Not Recovered/Not Resolved]

NARRATIVE: CASE EVENT DATE: 20190527
